FAERS Safety Report 23495026 (Version 2)
Quarter: 2024Q1

REPORT INFORMATION
  Report Type: Spontaneous
  Country: US (occurrence: US)
  Receive Date: 20240207
  Receipt Date: 20240315
  Transmission Date: 20240409
  Serious: No
  Sender: FDA-Public Use
  Company Number: US-Calliditas-2024CAL00150

PATIENT
  Age: 27 Year
  Sex: Female
  Weight: 58.05 kg

DRUGS (1)
  1. TARPEYO [Suspect]
     Active Substance: BUDESONIDE
     Indication: IgA nephropathy
     Dosage: 16 MG (4 MG CAPSULES) ONCE DAILY
     Route: 048
     Dates: start: 20230907

REACTIONS (6)
  - Gastroenteritis [Unknown]
  - Dehydration [Unknown]
  - Renal pain [Unknown]
  - Product dose omission issue [Recovered/Resolved]
  - Abdominal distension [Unknown]
  - Chromaturia [Unknown]

NARRATIVE: CASE EVENT DATE: 20240122
